FAERS Safety Report 6155019-X (Version None)
Quarter: 2009Q2

REPORT INFORMATION
  Report Type: 
  Country: None (occurrence: None)
  Receive Date: 20090410
  Receipt Date: 20090402
  Transmission Date: 20091009
  Serious: Yes (Life-Threatening, Hospitalization, Other)
  Sender: FDA-Public Use
  Company Number: 2009SP005572

PATIENT
  Age: 51 Year
  Sex: Male
  Weight: 75 kg

DRUGS (3)
  1. TEMODAL [Suspect]
     Indication: GLIOBLASTOMA MULTIFORME
     Dosage: 160 MG;QD;PO
     Route: 048
     Dates: start: 20080818, end: 20080926
  2. FORTECORTIN (CON.) [Concomitant]
  3. PANTOZOL (CON.) [Concomitant]

REACTIONS (2)
  - CHOLESTASIS [None]
  - HEPATITIS ACUTE [None]
